FAERS Safety Report 21242835 (Version 1)
Quarter: 2022Q3

REPORT INFORMATION
  Report Type: Report from Study
  Country: US (occurrence: US)
  Receive Date: 20220823
  Receipt Date: 20220823
  Transmission Date: 20221026
  Serious: No
  Sender: FDA-Public Use
  Company Number: US-KYOWAKIRIN-2022BKK013245

PATIENT

DRUGS (1)
  1. CRYSVITA [Suspect]
     Active Substance: BUROSUMAB-TWZA
     Indication: Hereditary hypophosphataemic rickets
     Dosage: 1 ML, EVERY 14 DAYS (30 MG TOTAL) UNDER THE SKIN
     Route: 058

REACTIONS (2)
  - Limb deformity [Unknown]
  - Medical device implantation [Unknown]
